FAERS Safety Report 6328252-1 (Version None)
Quarter: 2009Q3

REPORT INFORMATION
  Report Type: 
  Country: None (occurrence: None)
  Receive Date: 20090825
  Receipt Date: 20090211
  Transmission Date: 20100115
  Serious: No
  Sender: FDA-Public Use
  Company Number: US-ABBOTT-09P-163-0503232-00

PATIENT
  Sex: Female
  Weight: 150.73 kg

DRUGS (3)
  1. SYNTHROID [Suspect]
     Indication: HYPOTHYROIDISM
     Dosage: 150MCG WAS LAST KNOWN DOSE
     Route: 048
     Dates: start: 19860101, end: 20080101
  2. BENICAR [Concomitant]
     Indication: HYPERTENSION
     Route: 048
  3. LEVOXYL [Concomitant]
     Indication: HYPOTHYROIDISM
     Route: 048
     Dates: start: 20080101

REACTIONS (3)
  - NAUSEA [None]
  - UNDERDOSE [None]
  - VOMITING [None]
